FAERS Safety Report 8960574 (Version 3)
Quarter: 2013Q1

REPORT INFORMATION
  Report Type: Spontaneous
  Country: US (occurrence: None)
  Receive Date: 20121203
  Receipt Date: 20121213
  Transmission Date: 20140127
  Serious: Yes (Other)
  Sender: FDA-Public Use
  Company Number: 2012110068

PATIENT
  Age: 64 Year
  Sex: Female

DRUGS (4)
  1. FELBAMATE [Suspect]
     Indication: GRAND MAL CONVULSION
     Dosage: (1200 MG, 2 IN 1 D)
     Route: 048
     Dates: start: 201205
  2. FELBATOL (FELBAMATE) [Concomitant]
  3. CLONAZEPAM [Concomitant]
  4. SERTRALINE (SERTRALINE) (SERTRALINE) [Concomitant]

REACTIONS (7)
  - Joint injury [None]
  - Convulsion [None]
  - Product substitution issue [None]
  - Fall [None]
  - Upper limb fracture [None]
  - Urinary tract infection [None]
  - Joint range of motion decreased [None]
